FAERS Safety Report 9668090 (Version 1)
Quarter: 2013Q4

REPORT INFORMATION
  Report Type: Spontaneous
  Country: US (occurrence: US)
  Receive Date: 20131104
  Receipt Date: 20131104
  Transmission Date: 20140711
  Serious: Yes (Other)
  Sender: FDA-Public Use
  Company Number: US-TEVA-441345USA

PATIENT
  Age: 34 Year
  Sex: Female
  Weight: 56.75 kg

DRUGS (1)
  1. PARAGARD 380A [Suspect]
     Indication: CONTRACEPTION
     Route: 015
     Dates: start: 20121010

REACTIONS (12)
  - Uterine infection [Not Recovered/Not Resolved]
  - Complication of device insertion [Recovered/Resolved]
  - Menorrhagia [Not Recovered/Not Resolved]
  - Muscle spasms [Not Recovered/Not Resolved]
  - Abdominal distension [Not Recovered/Not Resolved]
  - Metrorrhagia [Not Recovered/Not Resolved]
  - Weight increased [Not Recovered/Not Resolved]
  - Anaemia [Not Recovered/Not Resolved]
  - Premenstrual headache [Not Recovered/Not Resolved]
  - Hunger [Not Recovered/Not Resolved]
  - Premenstrual dysphoric disorder [Recovered/Resolved]
  - Pain [Recovered/Resolved]
